FAERS Safety Report 9976324 (Version 1)
Quarter: 2014Q1

REPORT INFORMATION
  Report Type: Report from Study
  Country: US (occurrence: US)
  Receive Date: 20140306
  Receipt Date: 20140306
  Transmission Date: 20141002
  Serious: No
  Sender: FDA-Public Use
  Company Number: US-ABBVIE-13P-163-1167106-00

PATIENT
  Sex: Male
  Weight: 92.62 kg

DRUGS (6)
  1. HUMIRA [Suspect]
     Indication: RHEUMATOID ARTHRITIS
     Dates: start: 2008, end: 2011
  2. HUMIRA [Suspect]
     Dates: start: 2011, end: 201309
  3. GOLD SHOTS [Concomitant]
     Indication: RHEUMATOID ARTHRITIS
  4. VOLTAREN [Concomitant]
     Indication: PAIN
  5. FOLIC ACID [Concomitant]
     Indication: PRODUCT USED FOR UNKNOWN INDICATION
  6. METHOTREXATE [Concomitant]
     Indication: RHEUMATOID ARTHRITIS

REACTIONS (2)
  - Arthralgia [Not Recovered/Not Resolved]
  - Drug effect decreased [Recovered/Resolved]
